FAERS Safety Report 23991668 (Version 1)
Quarter: 2024Q2

REPORT INFORMATION
  Report Type: Other
  Country: US (occurrence: US)
  Receive Date: 20240619
  Receipt Date: 20240619
  Transmission Date: 20240716
  Serious: Yes (Life-Threatening)
  Sender: FDA-Public Use
  Company Number: US-B.Braun Medical Inc.-2158296

PATIENT
  Age: 6 Year
  Sex: Female

DRUGS (3)
  1. DEXTROSE\LIDOCAINE HYDROCHLORIDE [Suspect]
     Active Substance: DEXTROSE\LIDOCAINE HYDROCHLORIDE
     Indication: Ventricular tachycardia
  2. MAGNESIUM [Suspect]
     Active Substance: MAGNESIUM
  3. AMIODARONE [Suspect]
     Active Substance: AMIODARONE

REACTIONS (1)
  - Drug ineffective [Unknown]
